FAERS Safety Report 5616222-8 (Version None)
Quarter: 2008Q1

REPORT INFORMATION
  Report Type: 
  Country: None (occurrence: None)
  Receive Date: 20080204
  Receipt Date: 20080121
  Transmission Date: 20080703
  Serious: Yes (Life-Threatening, Hospitalization, Other)
  Sender: FDA-Public Use
  Company Number: MEDI-0006448

PATIENT
  Age: 14 Week

DRUGS (1)
  1. SYNAGIS [Suspect]
     Indication: ANTIVIRAL PROPHYLAXIS
     Dosage: 60 MG, 1 IN 1 M, INTRAMUSCULAR
     Route: 030
     Dates: start: 20071101, end: 20071204

REACTIONS (1)
  - APNOEA [None]
